FAERS Safety Report 6043265-5 (Version None)
Quarter: 2009Q1

REPORT INFORMATION
  Report Type: 
  Country: None (occurrence: None)
  Receive Date: 20090119
  Receipt Date: 20090107
  Transmission Date: 20090719
  Serious: Yes (Hospitalization, Other)
  Sender: FDA-Public Use
  Company Number: US-ELI_LILLY_AND_COMPANY-US200808003753

PATIENT
  Sex: Female
  Weight: 58.503 kg

DRUGS (3)
  1. CYMBALTA [Suspect]
     Indication: EAR DISORDER
     Dosage: 60 MG, UNK
     Dates: start: 20070101, end: 20080101
  2. CYMBALTA [Suspect]
     Dosage: 40 MG, UNK
     Dates: start: 20080101, end: 20080804
  3. TYLENOL                                 /SCH/ [Concomitant]

REACTIONS (20)
  - ABDOMINAL DISCOMFORT [None]
  - ALANINE AMINOTRANSFERASE INCREASED [None]
  - ARTHRALGIA [None]
  - ASPARTATE AMINOTRANSFERASE INCREASED [None]
  - DRUG WITHDRAWAL SYNDROME [None]
  - FEELING ABNORMAL [None]
  - HOT FLUSH [None]
  - HYPOACUSIS [None]
  - HYPOKALAEMIA [None]
  - HYPOTENSION [None]
  - INFLUENZA LIKE ILLNESS [None]
  - MALAISE [None]
  - MENTAL IMPAIRMENT [None]
  - MIGRAINE [None]
  - MOUTH ULCERATION [None]
  - NERVOUS SYSTEM DISORDER [None]
  - TEMPOROMANDIBULAR JOINT SYNDROME [None]
  - TINNITUS [None]
  - TREMOR [None]
  - WEIGHT DECREASED [None]
